FAERS Safety Report 5661429-7 (Version None)
Quarter: 2008Q1

REPORT INFORMATION
  Report Type: 
  Country: None (occurrence: None)
  Receive Date: 20080311
  Receipt Date: 20080228
  Transmission Date: 20080703
  Serious: Yes (Other)
  Sender: FDA-Public Use
  Company Number: GB-PFIZER INC-2008019782

PATIENT
  Age: 42 Year
  Sex: Male

DRUGS (3)
  1. CHANTIX [Suspect]
     Indication: SMOKING CESSATION THERAPY
     Route: 048
     Dates: start: 20071208, end: 20071220
  2. LANSOPRAZOLE [Concomitant]
     Indication: HIATUS HERNIA
     Dosage: TEXT:1-FREQ:DAILY
     Route: 048
  3. ALBUTEROL [Concomitant]
     Indication: ASTHMA
     Route: 055

REACTIONS (2)
  - CONFUSIONAL STATE [None]
  - DISORIENTATION [None]
